FAERS Safety Report 4621317-1 (Version None)
Quarter: 2005Q1

REPORT INFORMATION
  Report Type: 
  Country: None (occurrence: None)
  Receive Date: 20050323
  Receipt Date: 20050323
  Transmission Date: 20050727
  Serious: No
  Sender: FDA-Public Use
  Company Number: None

PATIENT
  Age: 93 Year
  Sex: Female
  Weight: 53.0709 kg

DRUGS (8)
  1. ARTHROTEC [Suspect]
     Indication: ARTHRITIS
     Dosage: 75 MG PO BID
     Route: 048
     Dates: start: 20050102, end: 20050202
  2. VICODIN [Concomitant]
  3. MEGACE [Concomitant]
  4. PROTONIX [Concomitant]
  5. PREDNISONE [Concomitant]
  6. SEROQUEL [Concomitant]
  7. ACCUPRIL [Concomitant]
  8. SERTRALINE HCL [Concomitant]

REACTIONS (3)
  - RASH [None]
  - SWELLING FACE [None]
  - SWOLLEN TONGUE [None]
